FAERS Safety Report 24873975 (Version 2)
Quarter: 2025Q1

REPORT INFORMATION
  Report Type: Report from Study
  Country: US (occurrence: US)
  Receive Date: 20250122
  Receipt Date: 20250320
  Transmission Date: 20250408
  Serious: Yes (Other)
  Sender: UCB
  Company Number: US-UCBSA-2025003170

PATIENT
  Age: 8 Year
  Sex: Male
  Weight: 26.9 kg

DRUGS (2)
  1. FINTEPLA [Suspect]
     Active Substance: FENFLURAMINE
     Indication: Severe myoclonic epilepsy of infancy
     Dates: start: 20210107
  2. FINTEPLA [Suspect]
     Active Substance: FENFLURAMINE
     Dosage: 3.4 MILLILITER, 2X/DAY (BID)

REACTIONS (4)
  - Tricuspid valve incompetence [Unknown]
  - Seizure [Recovered/Resolved]
  - Viral infection [Recovered/Resolved]
  - Illness [Recovered/Resolved]

NARRATIVE: CASE EVENT DATE: 20250111
